FAERS Safety Report 6733034-2 (Version None)
Quarter: 2010Q2

REPORT INFORMATION
  Report Type: 
  Country: None (occurrence: None)
  Receive Date: 20100517
  Receipt Date: 20100506
  Transmission Date: 20101027
  Serious: Yes (Other)
  Sender: FDA-Public Use
  Company Number: LEO-2010-00407

PATIENT

DRUGS (1)
  1. INNOHEP [Suspect]
     Indication: THROMBOSIS
     Dates: start: 20010101, end: 20060101

REACTIONS (4)
  - DRUG INEFFECTIVE [None]
  - HAEMORRHAGE [None]
  - OFF LABEL USE [None]
  - THROMBOSIS [None]
